FAERS Safety Report 9507671 (Version 4)
Quarter: 2015Q2

REPORT INFORMATION
  Report Type: Spontaneous
  Country: US (occurrence: US)
  Receive Date: 20130909
  Receipt Date: 20150615
  Transmission Date: 20150821
  Serious: Yes (Hospitalization, Disabling)
  Sender: FDA-Public Use
  Company Number: US-SANOFI-AVENTIS-2013SA088396

PATIENT
  Age: 62 Year
  Sex: Male

DRUGS (6)
  1. PLAVIX [Suspect]
     Active Substance: CLOPIDOGREL BISULFATE
     Indication: PRODUCT USED FOR UNKNOWN INDICATION
     Route: 048
     Dates: start: 20110428, end: 20120304
  2. ASPIRIN. [Concomitant]
     Active Substance: ASPIRIN
  3. HEPARIN [Concomitant]
     Active Substance: HEPARIN SODIUM
     Dosage: AS A POST-OP ANTICOAGULANT FOLLOWING BOTH STENT PLACEMENTS.
  4. PLAVIX [Suspect]
     Active Substance: CLOPIDOGREL BISULFATE
     Indication: STENT PLACEMENT
     Route: 048
     Dates: start: 20110428, end: 20120304
  5. ETODOLAC. [Concomitant]
     Active Substance: ETODOLAC
  6. BENICAR [Concomitant]
     Active Substance: OLMESARTAN MEDOXOMIL
     Dosage: 40/12.5 MG

REACTIONS (4)
  - Pain [Unknown]
  - Injury [Unknown]
  - Physical disability [Unknown]
  - Gastrointestinal haemorrhage [Unknown]

NARRATIVE: CASE EVENT DATE: 20120304
